FAERS Safety Report 9637019 (Version 1)
Quarter: 2013Q4

REPORT INFORMATION
  Report Type: Spontaneous
  Country: US (occurrence: None)
  Receive Date: 20131015
  Receipt Date: 20131015
  Transmission Date: 20140711
  Serious: Yes (Hospitalization)
  Sender: FDA-Public Use
  Company Number: US-JNJFOC-20121210446

PATIENT
  Age: 74 Year
  Sex: Female
  Weight: 65.77 kg

DRUGS (3)
  1. ROGAINE [Suspect]
     Indication: ALOPECIA
     Dosage: , 2 IN 1 DAY, TOPICAL
     Route: 061
     Dates: start: 20120101, end: 20121220
  2. VITAMINS [Concomitant]
  3. ATENOLOL (ATENOLOL) [Concomitant]

REACTIONS (1)
  - Chest pain [None]
